FAERS Safety Report 4363887-7 (Version None)
Quarter: 2004Q2

REPORT INFORMATION
  Report Type: 
  Country: None (occurrence: None)
  Receive Date: 20040520
  Receipt Date: 20040520
  Transmission Date: 20050107
  Serious: Yes (Other)
  Sender: FDA-Public Use
  Company Number: None

PATIENT
  Sex: Male

DRUGS (2)
  1. OXAPROSIN 600 MG 185-0141-01 [Suspect]
     Dosage: 1200 MG DAILY
  2. ROXICET [Suspect]
     Dosage: ONE -TWO Q 3 H PRN

REACTIONS (5)
  - FATIGUE [None]
  - JOINT SWELLING [None]
  - OEDEMA PERIPHERAL [None]
  - PRURITUS [None]
  - RASH [None]
